FAERS Safety Report 4309047-7 (Version None)
Quarter: 2004Q1

REPORT INFORMATION
  Report Type: 
  Country: None (occurrence: None)
  Receive Date: 20040301
  Receipt Date: 20040218
  Transmission Date: 20041129
  Serious: Yes (Death, Hospitalization)
  Sender: FDA-Public Use
  Company Number: F01200400307

PATIENT
  Age: 65 Year
  Sex: Female

DRUGS (7)
  1. (OXALIPLATIN) - SOLUTION - 190 MG [Suspect]
     Indication: DIFFUSE LARGE B-CELL LYMPHOMA
     Dosage: 190 MG ON DAY 2, Q2W, INTRAVENOUS NOS
     Route: 042
     Dates: start: 20040214, end: 20040214
  2. (GEMCITABINE) - SOLUTION - 1900 MG [Suspect]
     Dosage: 1900 MG ON DAY 2, Q2W, INTRAVENOUS NOS
     Route: 042
     Dates: start: 20040214, end: 20040214
  3. (RITUXIMAB) - 715 MG [Suspect]
     Dosage: 715 MG ON DAY 1, Q2W
     Dates: start: 20040213, end: 20040213
  4. OMEPRAZOLE [Concomitant]
  5. PREDNISONE [Concomitant]
  6. LEXOMIL (BROMAZEPAM) [Concomitant]
  7. LASIX [Concomitant]

REACTIONS (2)
  - DYSPNOEA [None]
  - RESPIRATORY FAILURE [None]
